FAERS Safety Report 5357540-0 (Version None)
Quarter: 2007Q2

REPORT INFORMATION
  Report Type: 
  Country: None (occurrence: None)
  Receive Date: 20070614
  Receipt Date: 20070606
  Transmission Date: 20071010
  Serious: Yes (Other)
  Sender: FDA-Public Use
  Company Number: CA-ASTRAZENECA-2007UW13040

PATIENT
  Age: 47 Year
  Sex: Female
  Weight: 99 kg

DRUGS (6)
  1. ARIMIDEX [Suspect]
     Indication: BREAST CANCER FEMALE
     Route: 048
     Dates: start: 20070514
  2. WARFARIN SODIUM [Interacting]
  3. HERCEPTIN [Concomitant]
  4. OMEGA-3 [Concomitant]
  5. VITAMIN D3 [Concomitant]
  6. CALCIUM CHLORIDE [Concomitant]

REACTIONS (1)
  - INTERNATIONAL NORMALISED RATIO DECREASED [None]
